FAERS Safety Report 7301578-0 (Version None)
Quarter: 2011Q1

REPORT INFORMATION
  Report Type: 
  Country: None (occurrence: None)
  Receive Date: 20110218
  Receipt Date: 20110207
  Transmission Date: 20110831
  Serious: Yes (Hospitalization, Other)
  Sender: FDA-Public Use
  Company Number: GB-ELI_LILLY_AND_COMPANY-GB201102002349

PATIENT
  Sex: Female

DRUGS (1)
  1. ZYPADHERA [Suspect]
     Dosage: 300 MG, EVERY TWO WEEKS
     Route: 030

REACTIONS (3)
  - DRUG INEFFECTIVE [None]
  - PSYCHOTIC BEHAVIOUR [None]
  - HOSPITALISATION [None]
